FAERS Safety Report 5046608-4 (Version None)
Quarter: 2006Q2

REPORT INFORMATION
  Report Type: 
  Country: None (occurrence: None)
  Receive Date: 20060630
  Receipt Date: 20060623
  Transmission Date: 20061013
  Serious: Yes (Hospitalization)
  Sender: FDA-Public Use
  Company Number: 200612613GDS

PATIENT
  Age: 82 Year
  Sex: Male

DRUGS (2)
  1. MOXIFLOXACIN HYDROCHLORIDE [Suspect]
     Indication: BRONCHOPNEUMONIA
     Dosage: 400 MG, TOTAL DAILY, ORAL
     Route: 048
  2. MOXIFLOXACIN HYDROCHLORIDE [Suspect]
     Indication: SINUSITIS
     Dosage: 400 MG, TOTAL DAILY, ORAL
     Route: 048

REACTIONS (5)
  - AGITATION [None]
  - ATRIAL FIBRILLATION [None]
  - CARDIAC FAILURE [None]
  - FEAR [None]
  - RESTLESSNESS [None]
